FAERS Safety Report 11614986 (Version 2)
Quarter: 2015Q4

REPORT INFORMATION
  Report Type: Spontaneous
  Country: US (occurrence: None)
  Receive Date: 20151007
  Receipt Date: 20151015
  Transmission Date: 20160304
  Serious: Yes (Hospitalization, Other)
  Sender: FDA-Public Use
  Company Number: 1224850-2015-00054

PATIENT
  Age: 57 Year
  Sex: Male
  Weight: 106 kg

DRUGS (21)
  1. LEVOTHYROXINE SODIUM. [Concomitant]
     Active Substance: LEVOTHYROXINE SODIUM
  2. RENVELA [Concomitant]
     Active Substance: SEVELAMER CARBONATE
  3. SALINE ORAL OTC [Concomitant]
     Active Substance: SODIUM CHLORIDE
  4. AMLODIPINE [Concomitant]
     Active Substance: AMLODIPINE BESYLATE
  5. LISPRO [Concomitant]
     Active Substance: INSULIN LISPRO
  6. LEVEMIR [Concomitant]
     Active Substance: INSULIN DETEMIR
  7. OPTIFLUX 1800NRE DIALYZER [Concomitant]
  8. ATORVASTATIN [Concomitant]
     Active Substance: ATORVASTATIN
  9. CARVEDILOL. [Concomitant]
     Active Substance: CARVEDILOL
  10. COLACE [Concomitant]
     Active Substance: DOCUSATE SODIUM
  11. FMC BLOODLINES [Concomitant]
     Active Substance: DEVICE
  12. VITAMIN D [Concomitant]
     Active Substance: CHOLECALCIFEROL
  13. HEPARIN [Concomitant]
     Active Substance: HEPARIN SODIUM
  14. GRANUFLO 2251 2K [Concomitant]
  15. LISINOPRIL. [Concomitant]
     Active Substance: LISINOPRIL
  16. FOLIC ACID. [Concomitant]
     Active Substance: FOLIC ACID
  17. CAAC GENERIC GEL CAPS 667 MG [Suspect]
     Active Substance: CALCIUM ACETATE
     Indication: HYPERPHOSPHATAEMIA
     Route: 048
     Dates: start: 20140703
  18. FRESENIUS T MACHINE [Concomitant]
  19. NATURALYTE DRY PACK [Concomitant]
  20. ASPRIN [Concomitant]
     Active Substance: ASPIRIN
  21. B COMPLEX VITIMAN [Concomitant]

REACTIONS (2)
  - Loss of consciousness [None]
  - Cardio-respiratory arrest [None]

NARRATIVE: CASE EVENT DATE: 20150909
